FAERS Safety Report 13965054 (Version 1)
Quarter: 2017Q3

REPORT INFORMATION
  Report Type: Spontaneous
  Country: IL (occurrence: IL)
  Receive Date: 20170913
  Receipt Date: 20170913
  Transmission Date: 20171128
  Serious: Yes (Other)
  Sender: FDA-Public Use
  Company Number: IL-TOLMAR, INC.-2017IL012049

PATIENT
  Sex: Male

DRUGS (1)
  1. ELIGARD [Suspect]
     Active Substance: LEUPROLIDE ACETATE
     Indication: PROSTATE CANCER
     Dosage: 22.5 MG, UNK; GIVEN FOR 3 MONTHS
     Route: 058

REACTIONS (3)
  - Disease progression [Unknown]
  - Drug ineffective [Unknown]
  - Prostatic specific antigen increased [Unknown]
